FAERS Safety Report 12131439 (Version 1)
Quarter: 2016Q1

REPORT INFORMATION
  Report Type: Spontaneous
  Country: FR (occurrence: FR)
  Receive Date: 20160301
  Receipt Date: 20160301
  Transmission Date: 20160526
  Serious: Yes (Death)
  Sender: FDA-Public Use
  Company Number: FR-JNJFOC-20160100801

PATIENT
  Age: 79 Year
  Sex: Female

DRUGS (10)
  1. TEMESTA [Concomitant]
     Active Substance: LORAZEPAM
     Route: 065
  2. TERCIAN [Suspect]
     Active Substance: CYAMEMAZINE
     Indication: PSYCHOMOTOR HYPERACTIVITY
     Dosage: STOPPED AT 12 P.M.??100 MG IN CASE OF AGITATION
     Route: 065
     Dates: start: 20160103, end: 20160103
  3. DEPAKOTE [Suspect]
     Active Substance: DIVALPROEX SODIUM
     Indication: PRODUCT USED FOR UNKNOWN INDICATION
     Route: 065
  4. LEXOMIL [Concomitant]
     Active Substance: BROMAZEPAM
     Route: 065
  5. TERCIAN [Suspect]
     Active Substance: CYAMEMAZINE
     Indication: HYPOMANIA
     Dosage: STOPPED AT 12 P.M.??100 MG IN CASE OF AGITATION
     Route: 065
     Dates: start: 20160103, end: 20160103
  6. BENZODIAZEPINE DERIVATIVES [Concomitant]
     Active Substance: BENZODIAZEPINE
     Route: 065
  7. TERCIAN [Suspect]
     Active Substance: CYAMEMAZINE
     Indication: TREMOR
     Dosage: STOPPED AT 12 P.M.??100 MG IN CASE OF AGITATION
     Route: 065
     Dates: start: 20160103, end: 20160103
  8. RISPERDAL [Suspect]
     Active Substance: RISPERIDONE
     Indication: DELIRIUM
     Dosage: STOPPED AT 12 P.M.
     Route: 065
     Dates: start: 20160103, end: 20160103
  9. LYSANXIA [Suspect]
     Active Substance: PRAZEPAM
     Indication: PRODUCT USED FOR UNKNOWN INDICATION
     Route: 065
  10. RISPERDAL [Suspect]
     Active Substance: RISPERIDONE
     Indication: MANIA
     Dosage: STOPPED AT 12 P.M.
     Route: 065
     Dates: start: 20160103, end: 20160103

REACTIONS (4)
  - Sudden death [Fatal]
  - Malaise [Fatal]
  - Cardiac arrest [Fatal]
  - Loss of consciousness [Fatal]

NARRATIVE: CASE EVENT DATE: 20160103
